FAERS Safety Report 6290598-3 (Version None)
Quarter: 2009Q3

REPORT INFORMATION
  Report Type: 
  Country: None (occurrence: None)
  Receive Date: 20090728
  Receipt Date: 20090728
  Transmission Date: 20100115
  Serious: No
  Sender: FDA-Public Use
  Company Number: None

PATIENT
  Age: 54 Year
  Sex: Female

DRUGS (7)
  1. REMICADE [Suspect]
     Dates: start: 20070518, end: 20070824
  2. FLEXERIL [Concomitant]
  3. VICODIN [Concomitant]
  4. ALEVE [Concomitant]
  5. PHENTIRAMINE [Concomitant]
  6. WELLBUTRIN [Concomitant]
  7. METFORMIN [Concomitant]

REACTIONS (8)
  - ABDOMINAL PAIN [None]
  - ALANINE AMINOTRANSFERASE INCREASED [None]
  - ASPARTATE AMINOTRANSFERASE INCREASED [None]
  - CHILLS [None]
  - HEPATOTOXICITY [None]
  - JAUNDICE [None]
  - LIVER INJURY [None]
  - PYREXIA [None]
